FAERS Safety Report 15420617 (Version 1)
Quarter: 2018Q3

REPORT INFORMATION
  Report Type: Spontaneous
  Country: US (occurrence: US)
  Receive Date: 20180924
  Receipt Date: 20180924
  Transmission Date: 20181010
  Serious: No
  Sender: FDA-Public Use
  Company Number: US-ALLERGAN-1814378US

PATIENT
  Age: 64 Year
  Sex: Female

DRUGS (2)
  1. LINZESS [Suspect]
     Active Substance: LINACLOTIDE
     Indication: IRRITABLE BOWEL SYNDROME
     Dosage: 145 ?G, QD
     Route: 048
  2. LINZESS [Suspect]
     Active Substance: LINACLOTIDE
     Dosage: 290 ?G, QD
     Route: 048

REACTIONS (7)
  - Upper respiratory tract infection [Not Recovered/Not Resolved]
  - Diarrhoea [Recovered/Resolved]
  - Contraindicated product administered [Unknown]
  - Off label use [Unknown]
  - Hypophagia [Not Recovered/Not Resolved]
  - Drug ineffective [Unknown]
  - Defaecation urgency [Not Recovered/Not Resolved]
